FAERS Safety Report 5446395-1 (Version None)
Quarter: 2007Q3

REPORT INFORMATION
  Report Type: 
  Country: None (occurrence: None)
  Receive Date: 20070907
  Receipt Date: 20070906
  Transmission Date: 20080115
  Serious: Yes (Other)
  Sender: FDA-Public Use
  Company Number: A0678736A

PATIENT
  Age: 69 Year
  Sex: Female

DRUGS (1)
  1. OS-CAL 500 + EXTRA D [Suspect]
     Indication: DRUG USE FOR UNKNOWN INDICATION
     Route: 048

REACTIONS (4)
  - DIZZINESS [None]
  - HYPOGLYCAEMIA [None]
  - MALAISE [None]
  - NAUSEA [None]
